FAERS Safety Report 5782962-3 (Version None)
Quarter: 2008Q2

REPORT INFORMATION
  Report Type: 
  Country: None (occurrence: None)
  Receive Date: 20080619
  Receipt Date: 20080619
  Transmission Date: 20081010
  Serious: Yes (Hospitalization)
  Sender: FDA-Public Use
  Company Number: None

PATIENT
  Sex: Male
  Weight: 82.2 kg

DRUGS (3)
  1. TREANDA [Suspect]
     Indication: LYMPHOMA
     Dosage: 177 MG ONCE, DAYS 1,4 IV
     Route: 042
     Dates: start: 20080114, end: 20080117
  2. BORTEZOMIB [Concomitant]
  3. RITUXIMAB [Concomitant]

REACTIONS (3)
  - NEUTROPHIL COUNT DECREASED [None]
  - PLATELET COUNT DECREASED [None]
  - PYREXIA [None]
